FAERS Safety Report 13260853 (Version 1)
Quarter: 2017Q1

REPORT INFORMATION
  Report Type: Report from Study
  Country: CA (occurrence: CA)
  Receive Date: 20170222
  Receipt Date: 20170222
  Transmission Date: 20170428
  Serious: Yes (Other)
  Sender: FDA-Public Use
  Company Number: CA-SA-2016SA224565

PATIENT
  Age: 57 Year
  Sex: Female
  Weight: 54.43 kg

DRUGS (4)
  1. GABAPENTIN. [Concomitant]
     Active Substance: GABAPENTIN
     Indication: PAIN
     Route: 048
  2. ALERTEC [Concomitant]
     Active Substance: MODAFINIL
     Indication: FATIGUE
     Route: 048
  3. CYMBALTA [Concomitant]
     Active Substance: DULOXETINE HYDROCHLORIDE
     Indication: PAIN
     Route: 048
  4. AUBAGIO [Suspect]
     Active Substance: TERIFLUNOMIDE
     Indication: MULTIPLE SCLEROSIS
     Route: 048
     Dates: start: 20161121, end: 20161209

REACTIONS (12)
  - Epistaxis [Not Recovered/Not Resolved]
  - Influenza like illness [Not Recovered/Not Resolved]
  - Burning sensation [Recovered/Resolved]
  - Skin exfoliation [Recovered/Resolved]
  - Dermatitis allergic [Recovered/Resolved]
  - Skin lesion [Unknown]
  - Erythema multiforme [Recovered/Resolved with Sequelae]
  - Pruritus [Recovered/Resolved]
  - Anxiety [Not Recovered/Not Resolved]
  - Hypoaesthesia [Not Recovered/Not Resolved]
  - Blood pressure increased [Recovering/Resolving]
  - Parosmia [Not Recovered/Not Resolved]

NARRATIVE: CASE EVENT DATE: 20161129
